FAERS Safety Report 24834339 (Version 1)
Quarter: 2025Q1

REPORT INFORMATION
  Report Type: Spontaneous
  Country: GB (occurrence: GB)
  Receive Date: 20250113
  Receipt Date: 20250113
  Transmission Date: 20250408
  Serious: Yes (Death, Life-Threatening)
  Sender: ACCORD
  Company Number: GB-MLMSERVICE-20241227-PI327546-00101-1

PATIENT
  Age: 53 Year
  Sex: Male

DRUGS (4)
  1. CISPLATIN [Suspect]
     Active Substance: CISPLATIN
     Indication: Testicular yolk sac tumour
  2. GENTAMICIN [Concomitant]
     Active Substance: GENTAMICIN
     Indication: Scrotal abscess
  3. BLEOMYCIN [Concomitant]
     Active Substance: BLEOMYCIN SULFATE
     Indication: Testicular yolk sac tumour
  4. VINCRISTINE [Concomitant]
     Active Substance: VINCRISTINE
     Indication: Testicular yolk sac tumour

REACTIONS (1)
  - Acute myocardial infarction [Fatal]
